FAERS Safety Report 11325264 (Version 1)
Quarter: 2015Q3

REPORT INFORMATION
  Report Type: Spontaneous
  Country: FR (occurrence: FR)
  Receive Date: 20150730
  Receipt Date: 20150730
  Transmission Date: 20151125
  Serious: Yes (Other)
  Sender: FDA-Public Use
  Company Number: FR-BAXTER-2015BAX041004

PATIENT
  Age: 64 Year
  Sex: Male

DRUGS (2)
  1. SOLUTION INJECTABLE DE CHLORURE DE SODIUM ? 0.9 POUR CENT BAXTER, SOLU [Suspect]
     Active Substance: SODIUM CHLORIDE
     Indication: OFF LABEL USE
  2. SOLUTION INJECTABLE DE CHLORURE DE SODIUM ? 0.9 POUR CENT BAXTER, SOLU [Suspect]
     Active Substance: SODIUM CHLORIDE
     Indication: ECHOCARDIOGRAM
     Route: 042

REACTIONS (1)
  - Transient ischaemic attack [Recovered/Resolved]
